FAERS Safety Report 8217474-0 (Version None)
Quarter: 2012Q1

REPORT INFORMATION
  Report Type: 
  Country: None (occurrence: None)
  Receive Date: 20120315
  Receipt Date: 20120301
  Transmission Date: 20120608
  Serious: Yes (Other)
  Sender: FDA-Public Use
  Company Number: 2012-00372

PATIENT
  Age: 59 Year
  Sex: Female
  Weight: 65.7716 kg

DRUGS (6)
  1. VITAMIN D [Concomitant]
  2. ACETAMINOPHEN AND HYDROCODONE (LORTAB) [Concomitant]
  3. TRAZODONE HCL [Concomitant]
  4. LEVOFLOXACIN [Suspect]
     Indication: INFECTION PROPHYLAXIS
     Dosage: 500 MG (500 MG,1 IN 1 D),PER ORAL
     Route: 048
     Dates: start: 20120229, end: 20120301
  5. VENLAFAXINE [Concomitant]
  6. MULTI-VITAMIN [Concomitant]

REACTIONS (3)
  - PAIN [None]
  - MYALGIA [None]
  - MOVEMENT DISORDER [None]
